FAERS Safety Report 12668271 (Version 1)
Quarter: 2016Q3

REPORT INFORMATION
  Report Type: Report from Study
  Country: CH (occurrence: CH)
  Receive Date: 20160819
  Receipt Date: 20160819
  Transmission Date: 20161109
  Serious: Yes (Hospitalization)
  Sender: FDA-Public Use
  Company Number: CH-ABBVIE-16K-151-1704648-00

PATIENT
  Age: 69 Year
  Sex: Male

DRUGS (1)
  1. DUODOPA [Suspect]
     Active Substance: CARBIDOPA\LEVODOPA
     Indication: PARKINSON^S DISEASE
     Dosage: MD:4,0ML, CONTINUOUS RATE DAY:4,9ML/H EXTRA DOSE:1,6ML
     Route: 050

REACTIONS (5)
  - Tremor [Unknown]
  - Drug effect incomplete [Unknown]
  - Incorrect route of drug administration [Unknown]
  - Device occlusion [Not Recovered/Not Resolved]
  - Device kink [Not Recovered/Not Resolved]

NARRATIVE: CASE EVENT DATE: 20160815
